FAERS Safety Report 11215382 (Version 4)
Quarter: 2015Q4

REPORT INFORMATION
  Report Type: Spontaneous
  Country: US (occurrence: US)
  Receive Date: 20150624
  Receipt Date: 20151117
  Transmission Date: 20160304
  Serious: Yes (Hospitalization)
  Sender: FDA-Public Use
  Company Number: US-BAYER-2015-363124

PATIENT
  Age: 29 Year
  Sex: Female
  Weight: 61.22 kg

DRUGS (2)
  1. MICROGESTIN [Concomitant]
     Active Substance: ETHINYL ESTRADIOL\NORETHINDRONE ACETATE
  2. MIRENA [Suspect]
     Active Substance: LEVONORGESTREL
     Indication: CONTRACEPTION
     Dosage: 20 MCG/24HR, CONT
     Route: 015
     Dates: start: 20110603, end: 20130703

REACTIONS (5)
  - Pain [None]
  - Injury [None]
  - Device dislocation [None]
  - Uterine perforation [None]
  - Menorrhagia [None]

NARRATIVE: CASE EVENT DATE: 20130701
